FAERS Safety Report 8838170 (Version 1)
Quarter: 2012Q4

REPORT INFORMATION
  Report Type: 
  Country: US (occurrence: US)
  Receive Date: 20121012
  Receipt Date: 20121012
  Transmission Date: 20130627
  Serious: No
  Sender: FDA-Public Use
  Company Number: US-PFIZER INC-2012252403

PATIENT
  Age: 26 Year
  Sex: Male

DRUGS (1)
  1. GEODON [Suspect]
     Dosage: UNK
     Dates: end: 2012

REACTIONS (2)
  - Malaise [Not Recovered/Not Resolved]
  - Drug withdrawal syndrome [Unknown]
